FAERS Safety Report 10742666 (Version 1)
Quarter: 2015Q1

REPORT INFORMATION
  Report Type: Spontaneous
  Country: DE (occurrence: DE)
  Receive Date: 20150127
  Receipt Date: 20150127
  Transmission Date: 20150721
  Serious: Yes (Other)
  Sender: FDA-Public Use
  Company Number: DE-TEVA-536013GER

PATIENT
  Age: 60 Year
  Sex: Female

DRUGS (1)
  1. FENTANYL-CT 25 MIKROGRAMM/H MATRIXPFLASTER [Suspect]
     Active Substance: FENTANYL
     Route: 048

REACTIONS (4)
  - Incorrect route of drug administration [Unknown]
  - Drug detoxification [Unknown]
  - Glossodynia [Unknown]
  - Fatigue [Unknown]
